FAERS Safety Report 10189782 (Version 1)
Quarter: 2014Q2

REPORT INFORMATION
  Report Type: Spontaneous
  Country: US (occurrence: US)
  Receive Date: 20140522
  Receipt Date: 20140522
  Transmission Date: 20141212
  Serious: Yes (Hospitalization)
  Sender: FDA-Public Use
  Company Number: US-SA-2013SA115635

PATIENT
  Age: 59 Year
  Sex: Male

DRUGS (2)
  1. LANTUS [Suspect]
     Indication: TYPE 2 DIABETES MELLITUS
     Dosage: DOSE:66 UNIT(S)
     Route: 058
     Dates: start: 201304
  2. HUMALOG [Suspect]
     Indication: TYPE 2 DIABETES MELLITUS

REACTIONS (1)
  - Infection [Recovered/Resolved]
